FAERS Safety Report 11686022 (Version 1)
Quarter: 2015Q4

REPORT INFORMATION
  Report Type: Spontaneous
  Country: JP (occurrence: JP)
  Receive Date: 20151030
  Receipt Date: 20151030
  Transmission Date: 20160304
  Serious: Yes (Other)
  Sender: FDA-Public Use
  Company Number: JP-TEVA-604325ISR

PATIENT
  Age: 36 Year
  Sex: Male
  Weight: 40.8 kg

DRUGS (4)
  1. CARVEDILOL. [Concomitant]
     Active Substance: CARVEDILOL
     Indication: CARDIAC FAILURE CHRONIC
     Dosage: 20MG FOR THE PAST 10 YEARS
     Route: 065
  2. FUROSEMIDE. [Suspect]
     Active Substance: FUROSEMIDE
     Indication: CARDIAC FAILURE CHRONIC
     Dosage: 20MG FOR THE PAST 10 YEARS
     Route: 065
  3. SPIRONOLACTONE. [Suspect]
     Active Substance: SPIRONOLACTONE
     Indication: CARDIAC FAILURE CHRONIC
     Dosage: 12.5MG FOR THE PAST 10 YEARS
     Route: 065
  4. ENALAPRIL [Concomitant]
     Active Substance: ENALAPRIL
     Indication: CARDIAC FAILURE CHRONIC
     Dosage: 2.5MG FOR THE PAST 10 YEARS
     Route: 065

REACTIONS (8)
  - Muscular weakness [Unknown]
  - Haemoglobin decreased [Unknown]
  - Ejection fraction decreased [Unknown]
  - Cardiac failure chronic [Unknown]
  - Pancytopenia [Unknown]
  - Micturition frequency decreased [Unknown]
  - Acute kidney injury [Unknown]
  - Hypophagia [Unknown]
